FAERS Safety Report 24317411 (Version 1)
Quarter: 2024Q3

REPORT INFORMATION
  Report Type: Spontaneous
  Country: AE (occurrence: AE)
  Receive Date: 20240913
  Receipt Date: 20240913
  Transmission Date: 20241017
  Serious: Yes (Other)
  Sender: GLENMARK
  Company Number: AE-GLENMARK PHARMACEUTICALS-2024GMK093934

PATIENT

DRUGS (2)
  1. TACROLIMUS [Suspect]
     Active Substance: TACROLIMUS
     Indication: Dermatomyositis
     Dosage: 1 GRAM
     Route: 065
  2. CYCLOPHOSPHAMIDE [Suspect]
     Active Substance: CYCLOPHOSPHAMIDE
     Indication: Dermatomyositis
     Dosage: 1 GRAM
     Route: 065

REACTIONS (3)
  - Respiratory disorder [Unknown]
  - Condition aggravated [Unknown]
  - Drug ineffective [Unknown]
